FAERS Safety Report 7711895-8 (Version None)
Quarter: 2011Q3

REPORT INFORMATION
  Report Type: 
  Country: None (occurrence: None)
  Receive Date: 20110826
  Receipt Date: 20110815
  Transmission Date: 20111222
  Serious: Yes (Death, Hospitalization)
  Sender: FDA-Public Use
  Company Number: SG-BRISTOL-MYERS SQUIBB COMPANY-15972714

PATIENT
  Age: 32 Year
  Sex: Female

DRUGS (1)
  1. CISPLATIN [Suspect]
     Indication: HEAD AND NECK CANCER

REACTIONS (9)
  - NEUTROPENIC SEPSIS [None]
  - ASPERGILLOMA [None]
  - PULMONARY ALVEOLAR HAEMORRHAGE [None]
  - LUNG ABSCESS [None]
  - SYSTEMIC MYCOSIS [None]
  - BONE MARROW FAILURE [None]
  - MULTI-ORGAN FAILURE [None]
  - CONGENITAL APLASTIC ANAEMIA [None]
  - NECROTISING COLITIS [None]
